FAERS Safety Report 12519775 (Version 1)
Quarter: 2016Q2

REPORT INFORMATION
  Report Type: Spontaneous
  Country: None (occurrence: DE)
  Receive Date: 20160630
  Receipt Date: 20160630
  Transmission Date: 20160815
  Serious: Yes (Hospitalization, Other)
  Sender: FDA-Public Use
  Company Number: DE-MEDAC PHARMA, INC.-1054450

PATIENT
  Age: 66 Year
  Weight: 92 kg

DRUGS (1)
  1. METEX [Suspect]
     Active Substance: METFORMIN HYDROCHLORIDE
     Route: 058
     Dates: start: 201111

REACTIONS (16)
  - Arthralgia [Unknown]
  - Photosensitivity reaction [Unknown]
  - Myalgia [Unknown]
  - Oedema peripheral [Unknown]
  - Rheumatoid nodule [Unknown]
  - Bursitis [Unknown]
  - Fatigue [Unknown]
  - Visual impairment [Unknown]
  - Hypertension [Unknown]
  - Oedema [Unknown]
  - Skin haemorrhage [Unknown]
  - Dizziness [Unknown]
  - Furuncle [Unknown]
  - Headache [Unknown]
  - Impaired healing [Unknown]
  - Loss of consciousness [Unknown]

NARRATIVE: CASE EVENT DATE: 201206
